FAERS Safety Report 6341655-4 (Version None)
Quarter: 2009Q3

REPORT INFORMATION
  Report Type: 
  Country: None (occurrence: None)
  Receive Date: 20090904
  Receipt Date: 20090825
  Transmission Date: 20100115
  Serious: Yes (Hospitalization)
  Sender: FDA-Public Use
  Company Number: AR-AMGEN-US356926

PATIENT
  Sex: Female
  Weight: 78 kg

DRUGS (5)
  1. ENBREL [Suspect]
     Indication: RHEUMATOID ARTHRITIS
     Route: 058
     Dates: start: 20080715, end: 20090701
  2. ENBREL [Suspect]
     Dates: start: 20090801
  3. ACIFOL [Concomitant]
     Route: 065
  4. METHOTREXATE [Concomitant]
     Indication: RHEUMATOID ARTHRITIS
     Route: 065
  5. ANTIDEPRESSANTS [Concomitant]
     Route: 065

REACTIONS (2)
  - BENIGN NEOPLASM [None]
  - THYROID NEOPLASM [None]
